FAERS Safety Report 5389520-3 (Version None)
Quarter: 2007Q3

REPORT INFORMATION
  Report Type: 
  Country: None (occurrence: None)
  Receive Date: 20070717
  Receipt Date: 20070711
  Transmission Date: 20080115
  Serious: Yes (Death)
  Sender: FDA-Public Use
  Company Number: US-SANOFI-SYNTHELABO-A03200701668

PATIENT
  Sex: Female
  Weight: 49.89 kg

DRUGS (4)
  1. MULTIVITAMIN [Concomitant]
     Dosage: UNK
     Route: 048
     Dates: start: 20050101
  2. DIGOXIN [Concomitant]
     Dosage: UNK
     Route: 048
  3. ARICEPT [Concomitant]
     Dosage: UNK
     Route: 048
  4. PLAVIX [Suspect]
     Route: 048

REACTIONS (7)
  - CARDIAC FAILURE [None]
  - CEREBROVASCULAR ACCIDENT [None]
  - DRUG INEFFECTIVE [None]
  - DYSPHAGIA [None]
  - PNEUMONIA [None]
  - SPEECH DISORDER [None]
  - TRANSIENT ISCHAEMIC ATTACK [None]
